FAERS Safety Report 6392446-X (Version None)
Quarter: 2009Q4

REPORT INFORMATION
  Report Type: 
  Country: None (occurrence: None)
  Receive Date: 20091007
  Receipt Date: 20090929
  Transmission Date: 20100525
  Serious: Yes (Other)
  Sender: FDA-Public Use
  Company Number: JP-PFIZER INC-2009276912

PATIENT

DRUGS (1)
  1. DETRUSITOL [Suspect]
     Dosage: 8 MG, 1X/DAY
     Route: 048
     Dates: start: 20090701

REACTIONS (2)
  - AZOTAEMIA [None]
  - MEDICATION ERROR [None]
